FAERS Safety Report 8518103 (Version 4)
Quarter: 2013Q2

REPORT INFORMATION
  Report Type: Spontaneous
  Country: US (occurrence: US)
  Receive Date: 20120417
  Receipt Date: 20130604
  Transmission Date: 20140414
  Serious: No
  Sender: FDA-Public Use
  Company Number: US-ASTRAZENECA-2012SE10617

PATIENT
  Age: 80 Year
  Sex: Male
  Weight: 90.3 kg

DRUGS (8)
  1. NEXIUM [Suspect]
     Indication: PHARYNGEAL ULCERATION
     Route: 048
     Dates: start: 201105
  2. NEXIUM [Suspect]
     Indication: PHARYNGEAL ULCERATION
     Dosage: TAKING NEXIUM 30 MINUTES BEFORE A MEAL
     Route: 048
  3. LISINOPRIL [Concomitant]
     Indication: HYPERTENSION
  4. METOPROLOL [Concomitant]
     Indication: HYPERTENSION
  5. AMLODIPINE [Concomitant]
     Indication: HYPERTENSION
  6. METFORMIN [Concomitant]
     Indication: DIABETES MELLITUS
  7. OXYBUTYNIN [Concomitant]
     Indication: BLADDER DISORDER
  8. AMITRIPTYLINE [Concomitant]
     Indication: MUSCLE SPASMS

REACTIONS (11)
  - Cough [Unknown]
  - Dysphagia [Unknown]
  - Oesophageal obstruction [Unknown]
  - Gastrointestinal disorder [Unknown]
  - Influenza [Unknown]
  - Haemorrhage [Unknown]
  - Lacrimation increased [Unknown]
  - Vomiting [Unknown]
  - Malaise [Unknown]
  - Off label use [Unknown]
  - Intentional drug misuse [Unknown]
